FAERS Safety Report 18877958 (Version 1)
Quarter: 2021Q1

REPORT INFORMATION
  Report Type: Spontaneous
  Country: US (occurrence: US)
  Receive Date: 20210210
  Receipt Date: 20210210
  Transmission Date: 20210420
  Serious: Yes (Death)
  Sender: FDA-Public Use
  Company Number: None

PATIENT
  Age: 67 Year
  Sex: Male
  Weight: 113.4 kg

DRUGS (1)
  1. LURBINECTEDIN 4MG [Suspect]
     Active Substance: LURBINECTEDIN
     Indication: SMALL CELL LUNG CANCER
     Route: 042
     Dates: start: 20201106, end: 20201221

REACTIONS (4)
  - Hilar lymphadenopathy [None]
  - Disease progression [None]
  - Hepatic lesion [None]
  - Hepatic enzyme increased [None]

NARRATIVE: CASE EVENT DATE: 20201106
